FAERS Safety Report 9973149 (Version 2)
Quarter: 2014Q1

REPORT INFORMATION
  Report Type: Spontaneous
  Country: US (occurrence: US)
  Receive Date: 20140306
  Receipt Date: 20140306
  Transmission Date: 20141002
  Serious: No
  Sender: FDA-Public Use
  Company Number: US-ABBVIE-13P-163-1108330-00

PATIENT
  Age: 46 Year
  Sex: Female
  Weight: 88.53 kg

DRUGS (3)
  1. HUMIRA [Suspect]
     Indication: PSORIASIS
     Route: 058
     Dates: start: 201111, end: 201111
  2. HUMIRA [Suspect]
     Route: 058
     Dates: start: 201111, end: 20130610
  3. HUMIRA [Suspect]
     Route: 058
     Dates: end: 201309

REACTIONS (3)
  - Tooth infection [Recovered/Resolved]
  - Gingivitis [Not Recovered/Not Resolved]
  - Tooth infection [Unknown]
